FAERS Safety Report 16196607 (Version 1)
Quarter: 2019Q2

REPORT INFORMATION
  Report Type: Spontaneous
  Country: US (occurrence: US)
  Receive Date: 20190415
  Receipt Date: 20190415
  Transmission Date: 20190711
  Serious: Yes (Other)
  Sender: FDA-Public Use
  Company Number: US-009507513-1904USA004646

PATIENT
  Age: 31 Year
  Sex: Male

DRUGS (7)
  1. BEXTRA [Suspect]
     Active Substance: VALDECOXIB
     Route: 048
  2. ACTIQ [Suspect]
     Active Substance: FENTANYL CITRATE
     Indication: BACK PAIN
     Dates: start: 2005
  3. ACTIQ [Suspect]
     Active Substance: FENTANYL CITRATE
     Indication: PAIN IN EXTREMITY
  4. DURAGESIC [Suspect]
     Active Substance: FENTANYL
     Indication: PAIN
     Route: 062
     Dates: end: 2005
  5. NEURONTIN [Suspect]
     Active Substance: GABAPENTIN
     Dosage: 1800 MG, QD
     Route: 048
  6. EFFEXOR XR [Suspect]
     Active Substance: VENLAFAXINE HYDROCHLORIDE
  7. REMERON [Suspect]
     Active Substance: MIRTAZAPINE
     Route: 048

REACTIONS (8)
  - Erectile dysfunction [Unknown]
  - Tooth disorder [Unknown]
  - Drug dependence [Unknown]
  - Tooth extraction [Unknown]
  - Toothache [Unknown]
  - Tremor [Unknown]
  - Drug withdrawal headache [Unknown]
  - Drug withdrawal syndrome [Unknown]

NARRATIVE: CASE EVENT DATE: 20040427
